APPROVED DRUG PRODUCT: HALOPERIDOL
Active Ingredient: HALOPERIDOL LACTATE
Strength: EQ 5MG BASE/ML
Dosage Form/Route: INJECTABLE;INJECTION
Application: A070864 | Product #001
Applicant: SOLOPAK LABORATORIES INC
Approved: Dec 14, 1987 | RLD: No | RS: No | Type: DISCN